FAERS Safety Report 4323803-0 (Version None)
Quarter: 2004Q1

REPORT INFORMATION
  Report Type: 
  Country: None (occurrence: None)
  Receive Date: 20040325
  Receipt Date: 20040325
  Transmission Date: 20041129
  Serious: Yes (Death)
  Sender: FDA-Public Use
  Company Number: None

PATIENT
  Age: 74 Year
  Sex: Female

DRUGS (1)
  1. ACTIVASE [Suspect]
     Indication: FEMORAL ARTERY OCCLUSION
     Dosage: 0.5 MG HOUR
     Dates: start: 20040113, end: 20040113

REACTIONS (5)
  - AREFLEXIA [None]
  - CEREBRAL HAEMORRHAGE [None]
  - HYPERTENSION [None]
  - MENTAL STATUS CHANGES [None]
  - NERVOUS SYSTEM DISORDER [None]
